FAERS Safety Report 4705335-0 (Version None)
Quarter: 2005Q2

REPORT INFORMATION
  Report Type: 
  Country: None (occurrence: None)
  Receive Date: 20050629
  Receipt Date: 20050613
  Transmission Date: 20051028
  Serious: Yes (Hospitalization)
  Sender: FDA-Public Use
  Company Number: 2005-DE-02228GD

PATIENT
  Age: 29 Year
  Sex: Female
  Weight: 41 kg

DRUGS (3)
  1. CODEINE SUL TAB [Suspect]
     Indication: SHORT-BOWEL SYNDROME
     Dosage: 60 MG (EVERY 6 HOURS),PO
     Route: 048
  2. OCTREOTIDE ACETATE [Suspect]
     Indication: SHORT-BOWEL SYNDROME
     Dosage: 100 MCG (EVERY DAY),SC
     Route: 058
  3. OPIUM (PAPAVER SOMNIFERUM TINCTURE) [Suspect]
     Indication: SHORT-BOWEL SYNDROME
     Dosage: (4 DROPS 3 TIMES A DAY)

REACTIONS (7)
  - DEHYDRATION [None]
  - ELECTROLYTE IMBALANCE [None]
  - FATIGUE [None]
  - HYPOKALAEMIA [None]
  - HYPOMAGNESAEMIA [None]
  - SHORT-BOWEL SYNDROME [None]
  - WEIGHT DECREASED [None]
